FAERS Safety Report 5501721-X (Version None)
Quarter: 2007Q4

REPORT INFORMATION
  Report Type: 
  Country: None (occurrence: None)
  Receive Date: 20071026
  Receipt Date: 20071026
  Transmission Date: 20080405
  Serious: No
  Sender: FDA-Public Use
  Company Number: None

PATIENT
  Age: 67 Year
  Sex: Male

DRUGS (1)
  1. AMIODARONE HCL [Suspect]
     Dosage: 200 MG, MON, WED, FRI

REACTIONS (3)
  - DRUG TOXICITY [None]
  - MULTI-ORGAN FAILURE [None]
  - PULMONARY FIBROSIS [None]
